FAERS Safety Report 7988927-5 (Version None)
Quarter: 2011Q4

REPORT INFORMATION
  Report Type: 
  Country: None (occurrence: None)
  Receive Date: 20111219
  Receipt Date: 20111212
  Transmission Date: 20120403
  Serious: Yes (Other)
  Sender: FDA-Public Use
  Company Number: PL-BRACCO-000102

PATIENT
  Sex: Female
  Weight: 75 kg

DRUGS (1)
  1. PROHANCE [Suspect]
     Indication: DIAGNOSTIC PROCEDURE
     Route: 042
     Dates: start: 20111202, end: 20111202

REACTIONS (1)
  - PHARYNGEAL OEDEMA [None]
